FAERS Safety Report 7481544-5 (Version None)
Quarter: 2011Q2

REPORT INFORMATION
  Report Type: 
  Country: None (occurrence: None)
  Receive Date: 20110516
  Receipt Date: 20110510
  Transmission Date: 20111010
  Serious: Yes (Other)
  Sender: FDA-Public Use
  Company Number: US-TEVA-279403USA

PATIENT
  Sex: Female

DRUGS (1)
  1. PARAGARD T 380A [Suspect]
     Indication: CONTRACEPTION
     Route: 015
     Dates: start: 20101001

REACTIONS (4)
  - DRUG INEFFECTIVE [None]
  - PREGNANCY WITH CONTRACEPTIVE DEVICE [None]
  - STREPTOCOCCUS TEST POSITIVE [None]
  - INTRA-UTERINE DEATH [None]
